FAERS Safety Report 18479972 (Version 1)
Quarter: 2020Q4

REPORT INFORMATION
  Report Type: Report from Study
  Country: FI (occurrence: FI)
  Receive Date: 20201109
  Receipt Date: 20201109
  Transmission Date: 20210114
  Serious: Yes (Other)
  Sender: FDA-Public Use
  Company Number: FI-MYLANLABS-2020M1086665

PATIENT
  Age: 14 Year
  Sex: Male

DRUGS (12)
  1. LEPONEX [Suspect]
     Active Substance: CLOZAPINE
     Dosage: 50 MILLIGRAM, QD
     Dates: start: 20201006, end: 20201007
  2. OLANZAPINE. [Concomitant]
     Active Substance: OLANZAPINE
     Dosage: 5 MG +5 MG
     Dates: start: 20200915, end: 20200923
  3. LEPONEX [Suspect]
     Active Substance: CLOZAPINE
     Dosage: 75 MILLIGRAM, QD
     Dates: start: 20200930, end: 20201005
  4. LEPONEX [Suspect]
     Active Substance: CLOZAPINE
     Indication: PSYCHOTIC DISORDER
     Dosage: UNK
     Dates: start: 202009
  5. LEPONEX [Suspect]
     Active Substance: CLOZAPINE
     Dosage: 25 MILLIGRAM, QD
     Dates: start: 20200924, end: 20200926
  6. SERONIL [Concomitant]
     Active Substance: FLUOXETINE HYDROCHLORIDE
     Dosage: 10 MILLIGRAM, QD
     Dates: start: 20200401, end: 20200810
  7. OLANZAPINE. [Concomitant]
     Active Substance: OLANZAPINE
     Dosage: 5 MG +7.5 MG
     Dates: start: 2018, end: 20200914
  8. LEPONEX [Suspect]
     Active Substance: CLOZAPINE
     Dosage: 50 MILLIGRAM, QD
     Dates: start: 20200927, end: 20200929
  9. OLANZAPINE. [Concomitant]
     Active Substance: OLANZAPINE
     Dosage: 5 MILLIGRAM, QD
     Dates: start: 20200924
  10. CIRCADIN [Concomitant]
     Active Substance: MELATONIN
     Dosage: 2 MG ONCE A DAY (IN THE EVENING)
     Dates: start: 201901
  11. LEPONEX [Suspect]
     Active Substance: CLOZAPINE
     Dosage: 12.5 MILLIGRAM, QD
     Dates: start: 20200922, end: 20200923
  12. SERONIL [Concomitant]
     Active Substance: FLUOXETINE HYDROCHLORIDE
     Dosage: 20 MILLIGRAM, QD
     Dates: start: 20200811, end: 20200922

REACTIONS (11)
  - Mitral valve incompetence [Unknown]
  - C-reactive protein increased [Recovering/Resolving]
  - Off label use [Unknown]
  - Heart rate increased [Recovered/Resolved]
  - Pyrexia [Recovered/Resolved]
  - Alanine aminotransferase increased [Unknown]
  - Eosinophilia [Recovered/Resolved]
  - Troponin T increased [Unknown]
  - White blood cell disorder [Unknown]
  - Product use in unapproved indication [Unknown]
  - Viral infection [Unknown]

NARRATIVE: CASE EVENT DATE: 20200922
